FAERS Safety Report 20812666 (Version 5)
Quarter: 2022Q3

REPORT INFORMATION
  Report Type: Report from Study
  Country: US (occurrence: None)
  Receive Date: 20220511
  Receipt Date: 20220907
  Transmission Date: 20221027
  Serious: Yes (Death, Hospitalization, Other)
  Sender: FDA-Public Use
  Company Number: US-ROCHE-3071294

PATIENT
  Age: 61 Year
  Sex: Male
  Weight: 70.7 kg

DRUGS (6)
  1. ATEZOLIZUMAB [Suspect]
     Active Substance: ATEZOLIZUMAB
     Indication: Small cell lung cancer
     Dosage: LAST DOSE ADMINISTERED PRIOR TO CARDIAC ARREST: 12/FEB/2022, 02/JUL/2022
     Route: 041
     Dates: start: 20220228, end: 20220228
  2. ATEZOLIZUMAB [Suspect]
     Active Substance: ATEZOLIZUMAB
     Dosage: LAST DOSE ADMINISTERED PRIOR TO FEVER: 07/FEB/2022
     Route: 041
     Dates: start: 20220207, end: 20220207
  3. CISPLATIN [Suspect]
     Active Substance: CISPLATIN
     Indication: Small cell lung cancer
     Dosage: LAST DOSE ADMINISTERED PRIOR TO CARDIAC ARREST ON 28/FEB/2022
     Route: 042
     Dates: start: 20220228, end: 20220228
  4. CISPLATIN [Suspect]
     Active Substance: CISPLATIN
     Dosage: LAST DOSE ADMINISTERED PRIOR TO FEVER: 07/FEB/2022
     Route: 042
     Dates: start: 20220117, end: 20220207
  5. ETOPOSIDE [Suspect]
     Active Substance: ETOPOSIDE
     Indication: Small cell lung cancer
     Dosage: LAST DOSE ADMINISTERED PRIOR TO CARDIAC ARREST 02/MAR/2022
     Route: 042
     Dates: start: 20220228, end: 20220302
  6. ETOPOSIDE [Suspect]
     Active Substance: ETOPOSIDE
     Dosage: LAST DOSE ADMINISTERED PRIOR TO FEVER: 09/FEB/2022
     Route: 042
     Dates: start: 20220117, end: 20220209

REACTIONS (3)
  - Cardiac arrest [Fatal]
  - Pyrexia [Recovered/Resolved]
  - Febrile neutropenia [Recovered/Resolved]

NARRATIVE: CASE EVENT DATE: 20220220
